FAERS Safety Report 8545401-5 (Version None)
Quarter: 2012Q3

REPORT INFORMATION
  Report Type: 
  Country: None (occurrence: None)
  Receive Date: 20120727
  Receipt Date: 20111102
  Transmission Date: 20120928
  Serious: No
  Sender: FDA-Public Use
  Company Number: US-ASTRAZENECA-2011SE66391

PATIENT
  Age: 12306 Day
  Sex: Female

DRUGS (1)
  1. SEROQUEL XR [Suspect]
     Indication: POSTPARTUM DISORDER
     Route: 048
     Dates: start: 20110825, end: 20111028

REACTIONS (6)
  - DRUG DOSE OMISSION [None]
  - LISTLESS [None]
  - OFF LABEL USE [None]
  - RESTLESSNESS [None]
  - SLEEP DISORDER [None]
  - FATIGUE [None]
